FAERS Safety Report 8162619-4 (Version None)
Quarter: 2012Q1

REPORT INFORMATION
  Report Type: 
  Country: None (occurrence: None)
  Receive Date: 20120103
  Receipt Date: 20111011
  Transmission Date: 20120608
  Serious: No
  Sender: FDA-Public Use
  Company Number: AE-2011-001831

PATIENT
  Age: 50 Year
  Sex: Male

DRUGS (9)
  1. PEGASYS [Concomitant]
  2. OMEPRAZOLE [Concomitant]
  3. INCIVEK [Suspect]
     Dosage: 2250 MG (750 MG, 1 IN 8 HR), ORAL
     Route: 048
     Dates: start: 20110730
  4. PROCRIT [Concomitant]
  5. MULTIVITAMIN [Concomitant]
  6. CHOLESTID (COLESTIPOL) [Concomitant]
  7. LEVOCETIRIZINE (LEVOCETIRIZINE) [Concomitant]
  8. RIBAVIRIN [Concomitant]
  9. ACETAMINOPHEN [Concomitant]

REACTIONS (1)
  - HAEMATURIA [None]
